FAERS Safety Report 8952267 (Version 1)
Quarter: 2012Q4

REPORT INFORMATION
  Report Type: Report from Study
  Country: GB (occurrence: GB)
  Receive Date: 20121205
  Receipt Date: 20121205
  Transmission Date: 20130627
  Serious: Yes (Death)
  Sender: FDA-Public Use
  Company Number: GB-AMGEN-GBRCT2012067480

PATIENT
  Age: 78 Year
  Sex: Female
  Weight: 70 kg

DRUGS (6)
  1. ETANERCEPT [Suspect]
     Indication: RHEUMATOID ARTHRITIS
     Dosage: 25 mg, 2 times/wk
     Dates: start: 20071105, end: 20080215
  2. HALOPERIDOL [Concomitant]
     Dosage: UNK
  3. HYOSCINE [Concomitant]
     Dosage: UNK
  4. MIDAZOLAM [Concomitant]
     Dosage: UNK
  5. MORPHINE SULFATE [Concomitant]
     Dosage: UNK
  6. PARACETAMOL [Concomitant]
     Dosage: UNK

REACTIONS (5)
  - Renal failure acute [Fatal]
  - Cellulitis [Fatal]
  - Cardiac failure congestive [Fatal]
  - Sepsis [Fatal]
  - Gastroenteritis norovirus [Fatal]
